FAERS Safety Report 8056275-3 (Version None)
Quarter: 2011Q4

REPORT INFORMATION
  Report Type: 
  Country: None (occurrence: None)
  Receive Date: 20111220
  Receipt Date: 20110831
  Transmission Date: 20120403
  Serious: Yes (Other)
  Sender: FDA-Public Use
  Company Number: PHEH2011US02932

PATIENT
  Age: 44 Year
  Sex: Male

DRUGS (3)
  1. MYFORTIC [Suspect]
     Indication: RENAL TRANSPLANT
     Dosage: 360 MG, BID, ORAL
     Route: 048
     Dates: start: 20100101
  2. CELLCEPT [Suspect]
     Indication: RENAL TRANSPLANT
     Dates: end: 20100101
  3. PROGRAF [Suspect]
     Indication: RENAL TRANSPLANT

REACTIONS (1)
  - SKIN CANCER [None]
